FAERS Safety Report 8839460 (Version 1)
Quarter: 2012Q4

REPORT INFORMATION
  Report Type: Spontaneous
  Country: US (occurrence: None)
  Receive Date: 20121011
  Receipt Date: 20121011
  Transmission Date: 20130627
  Serious: Yes (Disabling)
  Sender: FDA-Public Use
  Company Number: None

PATIENT
  Age: 52 Year
  Sex: Male
  Weight: 92.99 kg

DRUGS (2)
  1. VENLAFAXINE [Suspect]
  2. VENLAFAXINE [Suspect]

REACTIONS (1)
  - Tinnitus [None]
